FAERS Safety Report 22385363 (Version 4)
Quarter: 2024Q2

REPORT INFORMATION
  Report Type: Spontaneous
  Country: US (occurrence: US)
  Receive Date: 20230530
  Receipt Date: 20240409
  Transmission Date: 20240715
  Serious: No
  Sender: FDA-Public Use
  Company Number: US-PFIZER INC-PV202300031869

PATIENT
  Age: 61 Year
  Sex: Female

DRUGS (1)
  1. XELJANZ XR [Suspect]
     Active Substance: TOFACITINIB CITRATE
     Indication: Rheumatoid arthritis
     Dosage: 11 MG, DAILY
     Route: 048
     Dates: start: 202301, end: 202307

REACTIONS (8)
  - Drug ineffective [Unknown]
  - Renal function test abnormal [Unknown]
  - Liver function test increased [Unknown]
  - Arthralgia [Unknown]
  - Hypoaesthesia [Unknown]
  - Pain in extremity [Unknown]
  - Renal pain [Unknown]
  - Rheumatoid nodule [Unknown]

NARRATIVE: CASE EVENT DATE: 20230601
